FAERS Safety Report 17856787 (Version 6)
Quarter: 2020Q3

REPORT INFORMATION
  Report Type: Report from Study
  Country: CA (occurrence: CA)
  Receive Date: 20200603
  Receipt Date: 20200824
  Transmission Date: 20201103
  Serious: Yes (Hospitalization, Other)
  Sender: FDA-Public Use
  Company Number: CA-JNJFOC-20200402106

PATIENT
  Age: 57 Year
  Sex: Female
  Weight: 123 kg

DRUGS (2)
  1. REMICADE [Suspect]
     Active Substance: INFLIXIMAB
     Indication: COLITIS ULCERATIVE
  2. REMICADE [Suspect]
     Active Substance: INFLIXIMAB
     Indication: CROHN^S DISEASE
     Dosage: INFLIXIMAB RE?INDUCTION DOSE 2 DUE ON 05?JUN?2020. ON 05?JUN?2020, THE PATIENT RECEIVED 5TH 600 MG O
     Route: 042
     Dates: start: 20191023

REACTIONS (15)
  - Crohn^s disease [Recovering/Resolving]
  - Hyperhidrosis [Recovered/Resolved]
  - Colitis ulcerative [Unknown]
  - Nasopharyngitis [Not Recovered/Not Resolved]
  - Nasal congestion [Recovered/Resolved]
  - Dyspnoea [Recovered/Resolved]
  - Limb discomfort [Recovering/Resolving]
  - Fungal infection [Unknown]
  - Gastrointestinal haemorrhage [Unknown]
  - Erythema [Recovered/Resolved]
  - Infection [Unknown]
  - Infusion related reaction [Recovered/Resolved]
  - Off label use [Unknown]
  - Pyoderma gangrenosum [Unknown]
  - Influenza [Not Recovered/Not Resolved]

NARRATIVE: CASE EVENT DATE: 202003
